FAERS Safety Report 6624703-3 (Version None)
Quarter: 2010Q1

REPORT INFORMATION
  Report Type: 
  Country: None (occurrence: None)
  Receive Date: 20100310
  Receipt Date: 20091110
  Transmission Date: 20100710
  Serious: Yes (Other)
  Sender: FDA-Public Use
  Company Number: US-BIOGENIDEC-2009BI032578

PATIENT
  Age: 35 Year
  Sex: Female

DRUGS (3)
  1. AVONEX [Suspect]
     Indication: MULTIPLE SCLEROSIS
     Route: 030
     Dates: start: 20000301, end: 20041009
  2. AVONEX [Suspect]
     Route: 030
     Dates: start: 20040101, end: 20060201
  3. AVONEX [Suspect]
     Route: 030
     Dates: start: 20090301

REACTIONS (1)
  - ABORTION SPONTANEOUS [None]
